FAERS Safety Report 22642209 (Version 1)
Quarter: 2023Q2

REPORT INFORMATION
  Report Type: Spontaneous
  Country: US (occurrence: None)
  Receive Date: 20230623
  Receipt Date: 20230623
  Transmission Date: 20230721
  Serious: Yes (Death)
  Sender: FDA-Public Use
  Company Number: None

PATIENT
  Age: 76 Year
  Sex: Female

DRUGS (7)
  1. NIVESTYM [Suspect]
     Active Substance: FILGRASTIM-AAFI
     Indication: Breast cancer female
     Dosage: FREQUENCY : TWICE A WEEK;?
     Route: 058
  2. LIPITOR [Concomitant]
     Active Substance: ATORVASTATIN CALCIUM
  3. CALCIUM + VIT D3 [Concomitant]
  4. SYNTHROID [Concomitant]
     Active Substance: LEVOTHYROXINE SODIUM
  5. LOSARTAN [Concomitant]
     Active Substance: LOSARTAN
  6. METOPROLOL [Concomitant]
     Active Substance: METOPROLOL
  7. PACLITAXEL [Concomitant]
     Active Substance: PACLITAXEL

REACTIONS (1)
  - Death [None]

NARRATIVE: CASE EVENT DATE: 20230622
